FAERS Safety Report 12139156 (Version 1)
Quarter: 2016Q1

REPORT INFORMATION
  Report Type: Spontaneous
  Country: US (occurrence: US)
  Receive Date: 20160302
  Receipt Date: 20160302
  Transmission Date: 20160526
  Serious: Yes (Other)
  Sender: FDA-Public Use
  Company Number: US-HOSPIRA-3186422

PATIENT
  Age: 30 Year
  Sex: Female
  Weight: 86 kg

DRUGS (1)
  1. LIDOCAINE HYDROCHLORIDE WITH EPINEPHRINE [Suspect]
     Active Substance: EPINEPHRINE\LIDOCAINE HYDROCHLORIDE
     Indication: SURGERY
     Dates: start: 20160216

REACTIONS (2)
  - Drug ineffective [Recovered/Resolved]
  - Haemorrhage [Recovered/Resolved]

NARRATIVE: CASE EVENT DATE: 20160216
